FAERS Safety Report 7278713-6 (Version None)
Quarter: 2011Q1

REPORT INFORMATION
  Report Type: 
  Country: None (occurrence: None)
  Receive Date: 20110207
  Receipt Date: 20110202
  Transmission Date: 20110831
  Serious: Yes (Hospitalization)
  Sender: FDA-Public Use
  Company Number: JP-EISAI INC-E2020-07386-SPO-JP

PATIENT
  Age: 67 Year
  Sex: Female

DRUGS (5)
  1. SILECE [Suspect]
     Dosage: UNKNOWN, UNKNOWN
  2. DIAZEPAM [Suspect]
     Dosage: UNKNOWN, UNKNOWN
  3. CLONAZEPAM [Suspect]
     Dosage: UNKNOWN, UNKNOWN
  4. PAXIL [Concomitant]
  5. ARICEPT [Suspect]
     Indication: DEMENTIA ALZHEIMER'S TYPE
     Route: 048
     Dates: start: 20100301, end: 20100822

REACTIONS (1)
  - ALTERED STATE OF CONSCIOUSNESS [None]
